FAERS Safety Report 8603305-3 (Version None)
Quarter: 2012Q3

REPORT INFORMATION
  Report Type: 
  Country: None (occurrence: None)
  Receive Date: 20120817
  Receipt Date: 20120807
  Transmission Date: 20120928
  Serious: Yes (Other)
  Sender: FDA-Public Use
  Company Number: PHHY2012CN069259

PATIENT
  Sex: Male
  Weight: 6.2 kg

DRUGS (1)
  1. SEBIVO [Suspect]
     Indication: HEPATITIS B
     Dosage: 1 DF, UNK
     Route: 048
     Dates: start: 20120601

REACTIONS (2)
  - LARGE FOR DATES BABY [None]
  - FOETAL EXPOSURE DURING PREGNANCY [None]
